FAERS Safety Report 18219992 (Version 1)
Quarter: 2020Q3

REPORT INFORMATION
  Report Type: Spontaneous
  Country: CA (occurrence: CA)
  Receive Date: 20200901
  Receipt Date: 20200901
  Transmission Date: 20201103
  Serious: Yes (Hospitalization, Other)
  Sender: FDA-Public Use
  Company Number: CA-ASTRAZENECA-2020SF09030

PATIENT
  Age: 46 Year
  Sex: Female

DRUGS (5)
  1. ABILIFY [Interacting]
     Active Substance: ARIPIPRAZOLE
     Indication: PSYCHOTIC DISORDER
     Route: 048
  2. QUETIAPINE FUMARATE. [Suspect]
     Active Substance: QUETIAPINE FUMARATE
     Indication: SCHIZOAFFECTIVE DISORDER
     Route: 048
  3. QUETIAPINE FUMARATE. [Interacting]
     Active Substance: QUETIAPINE FUMARATE
     Indication: PSYCHOTIC DISORDER
     Route: 048
  4. ABILIFY [Interacting]
     Active Substance: ARIPIPRAZOLE
     Indication: SCHIZOAFFECTIVE DISORDER
     Route: 048
  5. SAPHRIS [Interacting]
     Active Substance: ASENAPINE MALEATE
     Indication: BIPOLAR DISORDER
     Route: 048

REACTIONS (4)
  - Underdose [Unknown]
  - Inappropriate schedule of product administration [Unknown]
  - Drug interaction [Unknown]
  - Urinary retention [Unknown]
